FAERS Safety Report 8372404-6 (Version None)
Quarter: 2012Q2

REPORT INFORMATION
  Report Type: 
  Country: None (occurrence: None)
  Receive Date: 20120521
  Receipt Date: 20120507
  Transmission Date: 20120825
  Serious: Yes (Death, Other)
  Sender: FDA-Public Use
  Company Number: TW-RANBAXY-2012RR-55229

PATIENT
  Age: 27 Year
  Sex: Female

DRUGS (6)
  1. ZOLPIDEM [Concomitant]
     Indication: PRODUCT USED FOR UNKNOWN INDICATION
     Dosage: 20 MG/DAY
     Route: 065
  2. PREDNISOLONE [Concomitant]
     Indication: PRODUCT USED FOR UNKNOWN INDICATION
     Dosage: 5-10 MG/DAY
     Route: 048
  3. ZOLPIDEM [Suspect]
     Indication: MOOD SWINGS
  4. METHYLPREDNISOLONE [Concomitant]
     Indication: ANKYLOSING SPONDYLITIS
     Dosage: 750 MG/DAY
     Route: 042
  5. ZOLPIDEM [Suspect]
     Indication: ANXIETY
  6. ZOLPIDEM [Suspect]
     Indication: INSOMNIA
     Dosage: 100-200 MG/DAY
     Route: 065

REACTIONS (3)
  - DRUG WITHDRAWAL SYNDROME [None]
  - DRUG ABUSE [None]
  - CATATONIA [None]
